FAERS Safety Report 10669382 (Version 2)
Quarter: 2015Q2

REPORT INFORMATION
  Report Type: Spontaneous
  Country: US (occurrence: US)
  Receive Date: 20141222
  Receipt Date: 20150630
  Transmission Date: 20150821
  Serious: No
  Sender: FDA-Public Use
  Company Number: US-SA-2014SA127938

PATIENT
  Age: 69 Year
  Sex: Female
  Weight: 137 kg

DRUGS (2)
  1. CODEINE [Concomitant]
     Active Substance: CODEINE
     Indication: TOOTH EXTRACTION
  2. AUBAGIO [Suspect]
     Active Substance: TERIFLUNOMIDE
     Indication: MULTIPLE SCLEROSIS
     Route: 048
     Dates: start: 20140901, end: 20141215

REACTIONS (2)
  - Alopecia [Recovered/Resolved]
  - Faeces soft [Not Recovered/Not Resolved]

NARRATIVE: CASE EVENT DATE: 20141015
